FAERS Safety Report 10722354 (Version 1)
Quarter: 2015Q1

REPORT INFORMATION
  Report Type: Spontaneous
  Country: US (occurrence: US)
  Receive Date: 20150119
  Receipt Date: 20150119
  Transmission Date: 20150721
  Serious: No
  Sender: FDA-Public Use
  Company Number: US-009507513-1501USA006618

PATIENT
  Sex: Male

DRUGS (1)
  1. COPPERTONE SPECTRA 3 SPF-50 [Suspect]
     Active Substance: HOMOSALATE\OCTINOXATE\OCTISALATE\OCTOCRYLENE\ZINC OXIDE
     Indication: PRODUCT USED FOR UNKNOWN INDICATION
     Dosage: UNK, UNKNOWN
     Route: 061
     Dates: start: 201403

REACTIONS (2)
  - Application site discolouration [Unknown]
  - Drug ineffective [Unknown]

NARRATIVE: CASE EVENT DATE: 201403
